FAERS Safety Report 18438815 (Version 4)
Quarter: 2021Q4

REPORT INFORMATION
  Report Type: Spontaneous
  Country: None (occurrence: US)
  Receive Date: 20201029
  Receipt Date: 20211127
  Transmission Date: 20220303
  Serious: No
  Sender: FDA-Public Use
  Company Number: US-AKCEA THERAPEUTICS-2020IS001442

PATIENT
  Age: 78 Year
  Sex: Female

DRUGS (2)
  1. TEGSEDI [Suspect]
     Active Substance: INOTERSEN SODIUM
     Indication: Hereditary neuropathic amyloidosis
     Route: 058
     Dates: start: 20200508
  2. DEVICE [Suspect]
     Active Substance: DEVICE

REACTIONS (10)
  - Creatinine urine decreased [Not Recovered/Not Resolved]
  - Platelet count decreased [Unknown]
  - Urine protein/creatinine ratio increased [Not Recovered/Not Resolved]
  - Protein urine present [Not Recovered/Not Resolved]
  - Urine leukocyte esterase positive [Unknown]
  - Bacterial test positive [Unknown]
  - Crystal urine present [Unknown]
  - Urine analysis abnormal [Unknown]
  - Alanine aminotransferase abnormal [Unknown]
  - Blood creatinine abnormal [Unknown]

NARRATIVE: CASE EVENT DATE: 20210914
